FAERS Safety Report 8013026-6 (Version None)
Quarter: 2011Q4

REPORT INFORMATION
  Report Type: 
  Country: None (occurrence: None)
  Receive Date: 20111229
  Receipt Date: 20111227
  Transmission Date: 20120403
  Serious: Yes (Other)
  Sender: FDA-Public Use
  Company Number: US-JNJFOC-20110601117

PATIENT
  Sex: Male
  Weight: 62.6 kg

DRUGS (2)
  1. LEVAQUIN [Suspect]
     Indication: RESPIRATORY DISORDER
     Route: 048
     Dates: start: 20110317, end: 20110318
  2. LEVAQUIN [Suspect]
     Indication: DIARRHOEA
     Route: 048
     Dates: start: 20110317, end: 20110318

REACTIONS (5)
  - MUSCULAR WEAKNESS [None]
  - PRODUCT QUALITY ISSUE [None]
  - INCORRECT DOSE ADMINISTERED [None]
  - CHEST PAIN [None]
  - NEUROMYOPATHY [None]
